FAERS Safety Report 8328037-0 (Version None)
Quarter: 2012Q2

REPORT INFORMATION
  Report Type: 
  Country: None (occurrence: None)
  Receive Date: 20120502
  Receipt Date: 20120420
  Transmission Date: 20120825
  Serious: Yes (Hospitalization, Disabling)
  Sender: FDA-Public Use
  Company Number: PHHY2012JP036280

PATIENT
  Sex: Female

DRUGS (8)
  1. HERBESSOR R [Concomitant]
     Dosage: 100 MG, UNK
     Route: 048
  2. TANATRIL [Concomitant]
     Dosage: 5 MG, UNK
     Route: 048
  3. TASIGNA [Suspect]
     Indication: CHRONIC MYELOID LEUKAEMIA
     Dosage: 200 MG, DAILY
     Route: 048
     Dates: start: 20091112, end: 20091216
  4. TASIGNA [Suspect]
     Dosage: 400 MG, DAILY
     Route: 048
     Dates: start: 20091217
  5. DEPAS [Concomitant]
     Dosage: 0.5 MG, UNK
     Route: 048
  6. ZOLPIDEM [Concomitant]
     Dosage: 10 MG, UNK
     Route: 048
  7. GASLON [Concomitant]
     Dosage: 2 MG, UNK
     Route: 048
     Dates: start: 20100610
  8. MUCOSTA [Concomitant]
     Dosage: 300 MG, UNK
     Route: 048
     Dates: end: 20100609

REACTIONS (2)
  - SUDDEN HEARING LOSS [None]
  - ATRIAL FIBRILLATION [None]
